FAERS Safety Report 7575116-1 (Version None)
Quarter: 2011Q2

REPORT INFORMATION
  Report Type: 
  Country: None (occurrence: None)
  Receive Date: 20110627
  Receipt Date: 20090411
  Transmission Date: 20111010
  Serious: Yes (Hospitalization, Other)
  Sender: FDA-Public Use
  Company Number: US-BAYER-200918145NA

PATIENT
  Age: 83 Year
  Sex: Female
  Weight: 102 kg

DRUGS (14)
  1. TRIAMTEREN HCT [Concomitant]
     Dosage: 37.5 / 25 MG DAILY
     Route: 048
     Dates: end: 20061219
  2. TRASYLOL [Suspect]
     Indication: CORONARY ARTERY BYPASS
     Dosage: 200 ML, LOADING DOSE OVER 30 MINUTES, FOLLOWED BY INFUSION
     Route: 042
     Dates: start: 20061220, end: 20061220
  3. NITROGLYCERIN [Concomitant]
     Dosage: 1 INCH EVERY 6 HOURS
     Route: 061
     Dates: start: 20061218
  4. FRESH FROZEN PLASMA [Concomitant]
     Dosage: 2 U, UNK
     Route: 042
     Dates: start: 20061220
  5. LASIX [Concomitant]
     Dosage: 20 MG, QD
     Route: 048
     Dates: start: 20061218
  6. PLAVIX [Concomitant]
     Dosage: 300 MG, QD
     Route: 048
     Dates: start: 20061219, end: 20061220
  7. RED BLOOD CELLS [Concomitant]
     Dosage: 5 U, UNK
     Route: 042
     Dates: start: 20061220
  8. TAMBOCOR [Concomitant]
     Dosage: 100 MG, BID
     Route: 048
     Dates: end: 20061219
  9. METOPROLOL TARTRATE [Concomitant]
     Dosage: 25 MG EVERY 8 HOURS
     Route: 048
     Dates: start: 20061219
  10. ACETYLSALICYLIC ACID SRT [Concomitant]
     Dosage: 325 MG, QD
     Route: 048
     Dates: start: 20061218
  11. DOBUTAMINE HCL [Concomitant]
     Dosage: 10 MCG/KG/MINUTE
     Route: 042
     Dates: start: 20061220, end: 20061224
  12. PLATELETS [Concomitant]
     Dosage: 2 PACKS
     Route: 042
     Dates: start: 20061220
  13. CRESTOR [Concomitant]
     Dosage: 10 MG, QD
     Route: 048
  14. HEPARIN [Concomitant]
     Dosage: 950 MG, UNK
     Route: 042
     Dates: start: 20061220, end: 20061220

REACTIONS (8)
  - RENAL FAILURE ACUTE [None]
  - ANHEDONIA [None]
  - ANXIETY [None]
  - PAIN [None]
  - EMOTIONAL DISTRESS [None]
  - UNEVALUABLE EVENT [None]
  - RENAL FAILURE [None]
  - INJURY [None]
